FAERS Safety Report 21552427 (Version 1)
Quarter: 2022Q4

REPORT INFORMATION
  Report Type: Spontaneous
  Country: CN (occurrence: CN)
  Receive Date: 20221104
  Receipt Date: 20221104
  Transmission Date: 20230112
  Serious: Yes (Other)
  Sender: FDA-Public Use
  Company Number: CN-SANOFI-01340722

PATIENT
  Age: 79 Year
  Sex: Female

DRUGS (4)
  1. PLAVIX [Suspect]
     Active Substance: CLOPIDOGREL BISULFATE
     Indication: Cardiovascular disorder
     Dosage: 1 DF, QD (1 TABLET/DAILY)
     Route: 048
  2. METOPROLOL SUCCINATE [Concomitant]
     Active Substance: METOPROLOL SUCCINATE
     Dosage: 1 DF, QD (1 TABLET/DAILY)
     Route: 048
  3. IRBESARTAN [Concomitant]
     Active Substance: IRBESARTAN
     Dosage: 1 DF, QD (1 TABLET/DAILY IN WINTER, HALF A TABLET/DAILY IN SUMMER)
     Route: 048
  4. LIPITOR [Concomitant]
     Active Substance: ATORVASTATIN CALCIUM
     Dosage: HALF A TABLET OR 1 TABLET/DAILY
     Route: 048

REACTIONS (1)
  - Intestinal ulcer [Unknown]
